FAERS Safety Report 23461744 (Version 3)
Quarter: 2024Q4

REPORT INFORMATION
  Report Type: Report from Study
  Country: JP (occurrence: JP)
  Receive Date: 20240131
  Receipt Date: 20241028
  Transmission Date: 20250115
  Serious: Yes (Hospitalization)
  Sender: ALEXION PHARMACEUTICALS
  Company Number: 2024A022087

PATIENT
  Age: 77 Year
  Weight: 47 kg

DRUGS (42)
  1. CALQUENCE [Suspect]
     Active Substance: ACALABRUTINIB
     Indication: Chronic lymphocytic leukaemia
     Dosage: 100 ML/KG
  2. CALQUENCE [Suspect]
     Active Substance: ACALABRUTINIB
     Indication: B-cell small lymphocytic lymphoma
     Dosage: 100 ML/KG
  3. CALQUENCE [Suspect]
     Active Substance: ACALABRUTINIB
     Dosage: 100 ML/KG
  4. CALQUENCE [Suspect]
     Active Substance: ACALABRUTINIB
     Dosage: 100 ML/KG
  5. GAZYVA [Suspect]
     Active Substance: OBINUTUZUMAB
     Indication: Chronic lymphocytic leukaemia
     Dosage: 100 MILLIGRAM, UNK
  6. GAZYVA [Suspect]
     Active Substance: OBINUTUZUMAB
     Indication: B-cell small lymphocytic lymphoma
     Dosage: 100 MILLIGRAM, UNK
  7. GAZYVA [Suspect]
     Active Substance: OBINUTUZUMAB
     Dosage: 100 MILLIGRAM, UNK
  8. GAZYVA [Suspect]
     Active Substance: OBINUTUZUMAB
     Dosage: 100 MILLIGRAM, UNK
  9. GAZYVA [Suspect]
     Active Substance: OBINUTUZUMAB
     Dosage: 900 MILLIGRAM
  10. GAZYVA [Suspect]
     Active Substance: OBINUTUZUMAB
     Dosage: 900 MILLIGRAM
  11. GAZYVA [Suspect]
     Active Substance: OBINUTUZUMAB
     Dosage: 900 MILLIGRAM
  12. GAZYVA [Suspect]
     Active Substance: OBINUTUZUMAB
     Dosage: 900 MILLIGRAM
  13. CALQUENCE [Suspect]
     Active Substance: ACALABRUTINIB
     Dosage: 100 MILLIGRAM
  14. CALQUENCE [Suspect]
     Active Substance: ACALABRUTINIB
     Dosage: 100 MILLIGRAM
  15. CALQUENCE [Suspect]
     Active Substance: ACALABRUTINIB
     Dosage: 100 MILLIGRAM
  16. CALQUENCE [Suspect]
     Active Substance: ACALABRUTINIB
     Dosage: 100 MILLIGRAM
  17. FAMOTIDINE [Concomitant]
     Active Substance: FAMOTIDINE
     Indication: B-cell small lymphocytic lymphoma
     Dosage: NUMBER OF SEPARATE DOSAGES UNKNOWN
  18. FAMOTIDINE [Concomitant]
     Active Substance: FAMOTIDINE
     Dosage: NUMBER OF SEPARATE DOSAGES UNKNOWN
  19. FEBUXOSTAT [Concomitant]
     Active Substance: FEBUXOSTAT
     Indication: Prophylaxis
     Dosage: NUMBER OF SEPARATE DOSAGES UNKNOWN
  20. FEBUXOSTAT [Concomitant]
     Active Substance: FEBUXOSTAT
     Dosage: NUMBER OF SEPARATE DOSAGES UNKNOWN
  21. LINZESS [Concomitant]
     Active Substance: LINACLOTIDE
     Dosage: NUMBER OF SEPARATE DOSAGES UNKNOWN
  22. LINZESS [Concomitant]
     Active Substance: LINACLOTIDE
     Dosage: NUMBER OF SEPARATE DOSAGES UNKNOWN
  23. LINZESS [Concomitant]
     Active Substance: LINACLOTIDE
     Dosage: NUMBER OF SEPARATE DOSAGES UNKNOWN
  24. LINZESS [Concomitant]
     Active Substance: LINACLOTIDE
     Dosage: NUMBER OF SEPARATE DOSAGES UNKNOWN
  25. FOLIC ACID [Concomitant]
     Active Substance: FOLIC ACID
     Indication: B-cell small lymphocytic lymphoma
     Dosage: NUMBER OF SEPARATE DOSAGES UNKNOWN
  26. FOLIC ACID [Concomitant]
     Active Substance: FOLIC ACID
     Dosage: NUMBER OF SEPARATE DOSAGES UNKNOWN
  27. FOLIC ACID [Concomitant]
     Active Substance: FOLIC ACID
     Dosage: NUMBER OF SEPARATE DOSAGES UNKNOWN
  28. FOLIC ACID [Concomitant]
     Active Substance: FOLIC ACID
     Dosage: NUMBER OF SEPARATE DOSAGES UNKNOWN
  29. SODIUM FERROUS CITRATE [Concomitant]
     Active Substance: SODIUM FERROUS CITRATE
     Indication: B-cell small lymphocytic lymphoma
     Dosage: DOSE UNKNOWN
  30. SODIUM FERROUS CITRATE [Concomitant]
     Active Substance: SODIUM FERROUS CITRATE
     Dosage: DOSE UNKNOWN
  31. SODIUM FERROUS CITRATE [Concomitant]
     Active Substance: SODIUM FERROUS CITRATE
     Dosage: DOSE UNKNOWN
  32. SODIUM FERROUS CITRATE [Concomitant]
     Active Substance: SODIUM FERROUS CITRATE
     Dosage: DOSE UNKNOWN
  33. CINAL [Concomitant]
     Indication: B-cell small lymphocytic lymphoma
     Dosage: DOSE UNKNOWN
  34. CINAL [Concomitant]
     Dosage: DOSE UNKNOWN
  35. CALONAL [Concomitant]
     Active Substance: ACETAMINOPHEN
     Indication: Prophylaxis
     Dosage: DOSE UNKNOWN
  36. CALONAL [Concomitant]
     Active Substance: ACETAMINOPHEN
     Dosage: DOSE UNKNOWN
  37. PREDONINE [Concomitant]
     Active Substance: PREDNISOLONE
     Dosage: DOSE UNKNOWN
  38. PREDONINE [Concomitant]
     Active Substance: PREDNISOLONE
     Dosage: DOSE UNKNOWN
  39. POLARAMINE [Concomitant]
     Active Substance: DEXCHLORPHENIRAMINE MALEATE
     Dosage: DOSE UNKNOWN
  40. POLARAMINE [Concomitant]
     Active Substance: DEXCHLORPHENIRAMINE MALEATE
     Dosage: DOSE UNKNOWN
  41. AMLODIPINE [Concomitant]
     Active Substance: AMLODIPINE BESYLATE
     Dosage: DOSE UNKNOWN
  42. AMLODIPINE [Concomitant]
     Active Substance: AMLODIPINE BESYLATE
     Dosage: DOSE UNKNOWN

REACTIONS (5)
  - Infusion related reaction [Recovered/Resolved]
  - Neutrophil count decreased [Not Recovered/Not Resolved]
  - Hypertension [Not Recovered/Not Resolved]
  - Diarrhoea [Recovering/Resolving]
  - Rash [Recovering/Resolving]
